FAERS Safety Report 4890952-8 (Version None)
Quarter: 2006Q1

REPORT INFORMATION
  Report Type: 
  Country: None (occurrence: None)
  Receive Date: 20060125
  Receipt Date: 20050722
  Transmission Date: 20060701
  Serious: Yes (Life-Threatening, Hospitalization)
  Sender: FDA-Public Use
  Company Number: 200516666GDDC

PATIENT
  Age: 56 Year
  Sex: Male

DRUGS (6)
  1. DOCETAXEL [Suspect]
     Indication: NON-SMALL CELL LUNG CANCER
     Route: 042
     Dates: start: 20050615, end: 20050706
  2. CISPLATIN [Suspect]
     Indication: NON-SMALL CELL LUNG CANCER
     Route: 042
     Dates: start: 20050615, end: 20050706
  3. ISOPTIN [Concomitant]
     Route: 048
     Dates: start: 20050405
  4. ANTABUSE [Concomitant]
  5. SURMONTIL [Concomitant]
     Route: 048
  6. PARIET [Concomitant]
     Route: 048

REACTIONS (1)
  - RENAL FAILURE ACUTE [None]
